FAERS Safety Report 6280279-4 (Version None)
Quarter: 2009Q3

REPORT INFORMATION
  Report Type: 
  Country: None (occurrence: None)
  Receive Date: 20090723
  Receipt Date: 20090721
  Transmission Date: 20100115
  Serious: Yes (Other)
  Sender: FDA-Public Use
  Company Number: US-ASTRAZENECA-2009UW01358

PATIENT
  Age: 68 Year
  Sex: Male

DRUGS (3)
  1. SEROQUEL XR [Suspect]
     Indication: BIPOLAR I DISORDER
     Dosage: TITRATED TO 200 XR
     Route: 048
  2. EFFEXOR [Concomitant]
  3. COGENTIN [Concomitant]

REACTIONS (3)
  - MUSCLE RIGIDITY [None]
  - SEROTONIN SYNDROME [None]
  - TREMOR [None]
